FAERS Safety Report 5101068-X (Version None)
Quarter: 2006Q3

REPORT INFORMATION
  Report Type: 
  Country: None (occurrence: None)
  Receive Date: 20060731
  Receipt Date: 20060411
  Transmission Date: 20061208
  Serious: No
  Sender: FDA-Public Use
  Company Number: 2006PV011891

PATIENT
  Age: 60 Year
  Sex: Female
  Weight: 131.5431 kg

DRUGS (6)
  1. BYETTA [Suspect]
     Indication: DIABETES MELLITUS NON-INSULIN-DEPENDENT
     Dosage: 5 MCG; BID; SC
     Route: 058
     Dates: start: 20060404
  2. INSULIN 75/25 [Concomitant]
  3. PRANDIN [Concomitant]
  4. BUSOPROLOL [Concomitant]
  5. ACCUPRIL [Concomitant]
  6. DIOVAN [Concomitant]

REACTIONS (5)
  - ARRHYTHMIA [None]
  - CONDITION AGGRAVATED [None]
  - DYSPNOEA [None]
  - HEART RATE INCREASED [None]
  - PAIN [None]
